FAERS Safety Report 22250434 (Version 1)
Quarter: 2023Q2

REPORT INFORMATION
  Report Type: Report from Study
  Country: US (occurrence: US)
  Receive Date: 20230425
  Receipt Date: 20230425
  Transmission Date: 20230722
  Serious: Yes (Hospitalization)
  Sender: FDA-Public Use
  Company Number: US-ARGENX-2022-ARGX-US000874

PATIENT

DRUGS (1)
  1. VYVGART [Suspect]
     Active Substance: EFGARTIGIMOD ALFA-FCAB
     Indication: Myasthenia gravis
     Dosage: 640 MG, 1/WEEK
     Route: 042
     Dates: start: 20220516

REACTIONS (4)
  - Asthma [Not Recovered/Not Resolved]
  - Symptom recurrence [Unknown]
  - Product dose omission issue [Unknown]
  - Dyspnoea [Unknown]
